FAERS Safety Report 5678086-6 (Version None)
Quarter: 2008Q1

REPORT INFORMATION
  Report Type: 
  Country: None (occurrence: None)
  Receive Date: 20080319
  Receipt Date: 20080310
  Transmission Date: 20080703
  Serious: Yes (Hospitalization)
  Sender: FDA-Public Use
  Company Number: 20073604

PATIENT
  Age: 35 Year
  Sex: Male
  Weight: 73.7 kg

DRUGS (1)
  1. LIORESAL [Suspect]
     Indication: MUSCLE SPASTICITY
     Dosage: 280-506 MCG, DAILY, INTRATHECAL
     Route: 037

REACTIONS (11)
  - ABDOMINAL RIGIDITY [None]
  - ANOREXIA [None]
  - CLONUS [None]
  - DEVICE BREAKAGE [None]
  - DEVICE LEAKAGE [None]
  - FATIGUE [None]
  - FLUSHING [None]
  - HEADACHE [None]
  - HYPERTENSION [None]
  - INSOMNIA [None]
  - MUSCLE CONTRACTIONS INVOLUNTARY [None]
